FAERS Safety Report 7506904-5 (Version None)
Quarter: 2011Q2

REPORT INFORMATION
  Report Type: 
  Country: None (occurrence: None)
  Receive Date: 20110415
  Receipt Date: 20100826
  Transmission Date: 20111010
  Serious: Yes (Hospitalization)
  Sender: FDA-Public Use
  Company Number: 10-001094

PATIENT
  Age: 45 Year
  Sex: Female
  Weight: 72.6 kg

DRUGS (1)
  1. LOESTRIN 24 FE [Suspect]
     Indication: DYSFUNCTIONAL UTERINE BLEEDING
     Dosage: 20/1000 UG, QD, ORAL
     Route: 048
     Dates: start: 20100201, end: 20100619

REACTIONS (2)
  - JOINT SPRAIN [None]
  - PULMONARY EMBOLISM [None]
